FAERS Safety Report 7208782-0 (Version None)
Quarter: 2011Q1

REPORT INFORMATION
  Report Type: 
  Country: None (occurrence: None)
  Receive Date: 20110104
  Receipt Date: 20101221
  Transmission Date: 20110831
  Serious: Yes (Death)
  Sender: FDA-Public Use
  Company Number: FR-CELGENEUS-056-50794-10123083

PATIENT
  Age: 77 Year

DRUGS (1)
  1. VIDAZA [Suspect]
     Route: 065
     Dates: start: 20100601, end: 20100901

REACTIONS (1)
  - DEATH [None]
